FAERS Safety Report 6649676-9 (Version None)
Quarter: 2010Q1

REPORT INFORMATION
  Report Type: 
  Country: None (occurrence: None)
  Receive Date: 20100324
  Receipt Date: 20100324
  Transmission Date: 20100710
  Serious: Yes (Hospitalization)
  Sender: FDA-Public Use
  Company Number: None

PATIENT
  Age: 63 Year
  Sex: Male
  Weight: 80.3 kg

DRUGS (13)
  1. PEMETREXED [Suspect]
     Indication: NON-SMALL CELL LUNG CANCER METASTATIC
     Dosage: 960MG IV EVERY 21 DAYS
     Route: 042
     Dates: start: 20100301
  2. APRICOXIB/PLACEBO [Suspect]
     Indication: NON-SMALL CELL LUNG CANCER METASTATIC
     Dosage: 400 MG ORALLY ONCE A DAY
     Route: 048
     Dates: start: 20100301, end: 20100314
  3. LOVASTIN [Concomitant]
  4. FELOPINE ER [Concomitant]
  5. M.V.I. [Concomitant]
  6. PERCOCET [Concomitant]
  7. VITAM B12 [Concomitant]
  8. FLICE ACID [Concomitant]
  9. COMPAZINE [Concomitant]
  10. DECADRON [Concomitant]
  11. ZOFRAN [Concomitant]
  12. OXYCONTIN [Concomitant]
  13. AMITRIPTYLINE HCL [Concomitant]

REACTIONS (13)
  - ABDOMINAL DISTENSION [None]
  - DIARRHOEA [None]
  - FLATULENCE [None]
  - HYPONATRAEMIA [None]
  - HYPOPHAGIA [None]
  - HYPOVOLAEMIA [None]
  - LEUKOCYTOSIS [None]
  - MALIGNANT NEOPLASM PROGRESSION [None]
  - NAUSEA [None]
  - PAIN [None]
  - VOMITING [None]
  - WAIST CIRCUMFERENCE INCREASED [None]
  - WHITE BLOOD CELL COUNT INCREASED [None]
